FAERS Safety Report 14366389 (Version 2)
Quarter: 2018Q1

REPORT INFORMATION
  Report Type: Spontaneous
  Country: US (occurrence: US)
  Receive Date: 20180109
  Receipt Date: 20180122
  Transmission Date: 20180509
  Serious: Yes (Life-Threatening, Hospitalization)
  Sender: FDA-Public Use
  Company Number: US-ROCHE-2052322

PATIENT
  Age: 28 Year

DRUGS (4)
  1. ZYRTEC [Concomitant]
     Active Substance: CETIRIZINE HYDROCHLORIDE
  2. LEVORA (UNITED STATES) [Concomitant]
  3. XOLAIR [Suspect]
     Active Substance: OMALIZUMAB
     Indication: PRODUCT USED FOR UNKNOWN INDICATION
     Dosage: ONE SINGLE DOSE
     Route: 065
     Dates: start: 20180103
  4. MONTELUKAST [Concomitant]
     Active Substance: MONTELUKAST SODIUM

REACTIONS (8)
  - Anaphylactic shock [Recovering/Resolving]
  - Face oedema [Unknown]
  - Tachycardia [Unknown]
  - Arthralgia [Unknown]
  - Asthma [Unknown]
  - Chest discomfort [Unknown]
  - Urticaria [Unknown]
  - Throat tightness [Unknown]

NARRATIVE: CASE EVENT DATE: 20180104
